FAERS Safety Report 20405763 (Version 1)
Quarter: 2022Q1

REPORT INFORMATION
  Report Type: Spontaneous
  Country: US (occurrence: None)
  Receive Date: 20220130
  Receipt Date: 20220130
  Transmission Date: 20220424
  Serious: Yes (Other)
  Sender: FDA-Public Use
  Company Number: None

PATIENT
  Age: 53 Year
  Sex: Female
  Weight: 69.75 kg

DRUGS (1)
  1. PROACTIV [Suspect]
     Active Substance: BENZOYL PEROXIDE
     Indication: Acne
     Dosage: FREQUENCY : TWICE A DAY;?
     Route: 061
     Dates: start: 20220124, end: 20220128

REACTIONS (6)
  - Dry skin [None]
  - Dry skin [None]
  - Eye swelling [None]
  - Pain of skin [None]
  - Pruritus [None]
  - Swelling face [None]

NARRATIVE: CASE EVENT DATE: 20220128
